FAERS Safety Report 23209272 (Version 1)
Quarter: 2023Q4

REPORT INFORMATION
  Report Type: Spontaneous
  Country: NO (occurrence: NO)
  Receive Date: 20231121
  Receipt Date: 20231121
  Transmission Date: 20240109
  Serious: Yes (Other)
  Sender: FDA-Public Use
  Company Number: None

PATIENT
  Age: 30 Year
  Sex: Male
  Weight: 76 kg

DRUGS (4)
  1. RINVOQ [Suspect]
     Active Substance: UPADACITINIB
     Indication: Crohn^s disease
     Dosage: L04AA44 - UPADACITINIB - ONGOING TREATMENT
     Route: 048
     Dates: start: 2023
  2. OXAZEPAM [Concomitant]
     Active Substance: OXAZEPAM
     Indication: Anxiolytic therapy
     Dosage: TIME INTERVAL: AS NECESSARY: ONE PER DAY AS REQUIRED.?N05BA04 - OKSAZEPAM
     Dates: end: 20231105
  3. ACETAMINOPHEN [Concomitant]
     Active Substance: ACETAMINOPHEN
     Indication: Pain
     Dosage: TIME INTERVAL: AS NECESSARY: 2 PER DAY AS REQUIRED.?PARACET STIKKPILLE 1 G?N02BE01 - PARACETAMOL
  4. OXYCODONE HYDROCHLORIDE [Concomitant]
     Active Substance: OXYCODONE HYDROCHLORIDE
     Indication: Pain
     Dosage: TIME INTERVAL: AS NECESSARY: 5 MG UP TO FOUR TIMES DAILY AS REQUIRED.?OXYNORM KAPS 5 MG?N02AA05 -...
     Dates: end: 20231104

REACTIONS (11)
  - Rectal haemorrhage [Unknown]
  - Hyperaesthesia [Unknown]
  - Increased tendency to bruise [Unknown]
  - Pain in extremity [Not Recovered/Not Resolved]
  - Acne [Unknown]
  - Pain of skin [Not Recovered/Not Resolved]
  - Vision blurred [Not Recovered/Not Resolved]
  - Folliculitis [Not Recovered/Not Resolved]
  - Dizziness [Not Recovered/Not Resolved]
  - Allodynia [Not Recovered/Not Resolved]
  - Temperature intolerance [Not Recovered/Not Resolved]
